FAERS Safety Report 5911222-2 (Version None)
Quarter: 2008Q4

REPORT INFORMATION
  Report Type: 
  Country: None (occurrence: None)
  Receive Date: 20081007
  Receipt Date: 20080925
  Transmission Date: 20090506
  Serious: Yes (Other)
  Sender: FDA-Public Use
  Company Number: CA-WYE-H06277908

PATIENT
  Age: 78 Year
  Sex: Male

DRUGS (4)
  1. PANTOPRAZOLE SODIUM [Suspect]
     Route: 048
     Dates: start: 20030101, end: 20080901
  2. LASIX [Concomitant]
     Route: 048
     Dates: start: 20030401
  3. ASPIRIN [Concomitant]
     Route: 048
     Dates: start: 20031001
  4. DIGOXIN [Concomitant]
     Route: 048
     Dates: start: 20030101

REACTIONS (5)
  - CARDIAC FIBRILLATION [None]
  - CONDITION AGGRAVATED [None]
  - DROOLING [None]
  - MUSCULAR WEAKNESS [None]
  - RASH [None]
